FAERS Safety Report 10721679 (Version 3)
Quarter: 2015Q1

REPORT INFORMATION
  Report Type: Spontaneous
  Country: US (occurrence: US)
  Receive Date: 20150119
  Receipt Date: 20150309
  Transmission Date: 20150721
  Serious: Yes (Other)
  Sender: FDA-Public Use
  Company Number: US-PFIZER INC-2015019981

PATIENT
  Age: 59 Year
  Sex: Male
  Weight: 95 kg

DRUGS (2)
  1. AVALIDE [Concomitant]
     Active Substance: HYDROCHLOROTHIAZIDE\IRBESARTAN
     Indication: HYPERTENSION
     Dosage: HYDROCHLOROTHIAZIDE: 300/ IRBESARTAN: 12.5
  2. EFFEXOR XR [Suspect]
     Active Substance: VENLAFAXINE HYDROCHLORIDE
     Indication: DEPRESSION
     Dosage: UNK, 1X/DAY
     Route: 048
     Dates: start: 20141015, end: 20141225

REACTIONS (3)
  - Speech disorder [Unknown]
  - Memory impairment [Unknown]
  - Tinnitus [Not Recovered/Not Resolved]

NARRATIVE: CASE EVENT DATE: 2014
